FAERS Safety Report 15178150 (Version 7)
Quarter: 2019Q1

REPORT INFORMATION
  Report Type: Spontaneous
  Country: DE (occurrence: DE)
  Receive Date: 20180721
  Receipt Date: 20190211
  Transmission Date: 20190417
  Serious: Yes (Death, Hospitalization, Other)
  Sender: FDA-Public Use
  Company Number: DE-ACCORD-069683

PATIENT
  Age: 80 Year
  Sex: Female

DRUGS (3)
  1. ELIQUIS [Suspect]
     Active Substance: APIXABAN
     Indication: ANTICOAGULANT THERAPY
     Route: 065
  2. ACETYLSALICYLIC ACID [Suspect]
     Active Substance: ASPIRIN
     Indication: ANTICOAGULANT THERAPY
     Route: 065
  3. CLOPIDOGREL [Suspect]
     Active Substance: CLOPIDOGREL BISULFATE
     Indication: ANTICOAGULANT THERAPY
     Dosage: UNK
     Route: 065

REACTIONS (12)
  - Osteomyelitis [Fatal]
  - Gastrointestinal oedema [Fatal]
  - Multiple organ dysfunction syndrome [Fatal]
  - Muscle abscess [Fatal]
  - Anal haemorrhage [Fatal]
  - Rectal haemorrhage [Fatal]
  - Diverticulum [Fatal]
  - Diverticulitis [Fatal]
  - Osteonecrosis [Fatal]
  - Anaemia [Fatal]
  - Anal stenosis [Fatal]
  - Septic shock [Fatal]
